FAERS Safety Report 6390947-1 (Version None)
Quarter: 2009Q4

REPORT INFORMATION
  Report Type: 
  Country: None (occurrence: None)
  Receive Date: 20091001
  Receipt Date: 20090622
  Transmission Date: 20100525
  Serious: No
  Sender: FDA-Public Use
  Company Number: 1000006966

PATIENT
  Age: 63 Year
  Sex: Female

DRUGS (2)
  1. BYSTOLIC [Suspect]
     Indication: LONG QT SYNDROME
     Dosage: 2.5 MG (2.5 MG, 1 IN 1 D), ORAL
     Route: 048
     Dates: start: 20080901
  2. DILANTIN [Concomitant]

REACTIONS (3)
  - ARTHRALGIA [None]
  - MYALGIA [None]
  - VISION BLURRED [None]
